FAERS Safety Report 9361499 (Version 1)
Quarter: 2013Q2

REPORT INFORMATION
  Report Type: Spontaneous
  Country: US (occurrence: US)
  Receive Date: 20130621
  Receipt Date: 20130621
  Transmission Date: 20140414
  Serious: Yes (Hospitalization)
  Sender: FDA-Public Use
  Company Number: US-US-EMD SERONO, INC.-230578J09USA

PATIENT
  Age: 40 Year
  Sex: Female

DRUGS (2)
  1. REBIF [Suspect]
     Indication: MULTIPLE SCLEROSIS
     Route: 058
     Dates: start: 20020102
  2. ALEVE [Concomitant]
     Indication: PREMEDICATION

REACTIONS (6)
  - Injection site necrosis [Recovered/Resolved]
  - Injection site abscess [Recovered/Resolved]
  - Hypertension [Recovering/Resolving]
  - Wrist fracture [Recovering/Resolving]
  - Fall [Unknown]
  - Injection site reaction [Unknown]
